FAERS Safety Report 4280514-8 (Version None)
Quarter: 2004Q1

REPORT INFORMATION
  Report Type: 
  Country: None (occurrence: None)
  Receive Date: 20040128
  Receipt Date: 20040128
  Transmission Date: 20041129
  Serious: Yes (Life-Threatening, Hospitalization)
  Sender: FDA-Public Use
  Company Number: None

PATIENT
  Sex: Male

DRUGS (8)
  1. HEPARIN [Suspect]
     Indication: CORONARY ANGIOPLASTY
     Dosage: NOMOGRAM INTRAVENOUS
     Route: 042
     Dates: start: 20031212, end: 20031213
  2. INSULIN [Concomitant]
  3. SIMVASTATIN [Concomitant]
  4. METOPROLOL [Concomitant]
  5. ASPIRIN [Concomitant]
  6. ALPRAZOLAM [Concomitant]
  7. ZOFRAN [Concomitant]
  8. SERTRALINE HCL [Concomitant]

REACTIONS (1)
  - PLATELET COUNT DECREASED [None]
